FAERS Safety Report 6748502-7 (Version None)
Quarter: 2010Q2

REPORT INFORMATION
  Report Type: 
  Country: None (occurrence: None)
  Receive Date: 20100527
  Receipt Date: 20100527
  Transmission Date: 20101027
  Serious: No
  Sender: FDA-Public Use
  Company Number: None

PATIENT
  Age: 46 Year
  Sex: Female
  Weight: 104.3273 kg

DRUGS (1)
  1. NUCYNTA [Suspect]
     Indication: BACK PAIN
     Dosage: 1  2 TO 3 TIMES ADAY PO
     Route: 048
     Dates: start: 20100508, end: 20100525

REACTIONS (8)
  - DISTURBANCE IN ATTENTION [None]
  - DYSPNOEA [None]
  - DYSSTASIA [None]
  - FALL [None]
  - GAIT DISTURBANCE [None]
  - IMPAIRED WORK ABILITY [None]
  - UPPER AIRWAY OBSTRUCTION [None]
  - VISUAL IMPAIRMENT [None]
